FAERS Safety Report 7150564-2 (Version None)
Quarter: 2010Q4

REPORT INFORMATION
  Report Type: 
  Country: None (occurrence: None)
  Receive Date: 20101124
  Receipt Date: 20101118
  Transmission Date: 20110411
  Serious: Yes (Death, Hospitalization, Other)
  Sender: FDA-Public Use
  Company Number: 2010AC000461

PATIENT
  Age: 66 Year
  Sex: Male

DRUGS (11)
  1. DIGOXIN [Suspect]
     Indication: ATRIAL FIBRILLATION
     Dosage: 0.250 MG; PO
     Route: 048
     Dates: start: 20070425
  2. ZETIA [Concomitant]
  3. TRICOR [Concomitant]
  4. PRAVASTATIN [Concomitant]
  5. QUINAPRIL [Concomitant]
  6. FUROSEMIDE [Concomitant]
  7. METFORMIN [Concomitant]
  8. POTASSIUM CHLORIDE [Concomitant]
  9. WARFARIN SODIUM [Concomitant]
  10. ASPIRIN [Concomitant]
  11. IRON [Concomitant]

REACTIONS (14)
  - ALTERED STATE OF CONSCIOUSNESS [None]
  - ANHEDONIA [None]
  - ATELECTASIS [None]
  - ATRIAL FIBRILLATION [None]
  - ATRIOVENTRICULAR BLOCK FIRST DEGREE [None]
  - CARDIAC ARREST [None]
  - DEVICE MALFUNCTION [None]
  - ECONOMIC PROBLEM [None]
  - ISCHAEMIC CARDIOMYOPATHY [None]
  - MULTIPLE INJURIES [None]
  - PAIN [None]
  - PULSE ABSENT [None]
  - THERAPEUTIC AGENT TOXICITY [None]
  - VENTRICULAR TACHYCARDIA [None]
